FAERS Safety Report 8480341-1 (Version None)
Quarter: 2012Q2

REPORT INFORMATION
  Report Type: 
  Country: None (occurrence: None)
  Receive Date: 20120630
  Receipt Date: 20120621
  Transmission Date: 20120825
  Serious: Yes (Death)
  Sender: FDA-Public Use
  Company Number: FR-TEVA-345003ISR

PATIENT
  Sex: Male

DRUGS (2)
  1. ETOPOSIDE [Suspect]
     Indication: SMALL CELL LUNG CANCER METASTATIC
     Dosage: 120 MILLIGRAM; FREQUENCY: TWICE PER COURSE 1 COURSE/MONTH
     Route: 041
     Dates: start: 20120601, end: 20120602
  2. CARBOPLATIN [Suspect]
     Indication: SMALL CELL LUNG CANCER METASTATIC
     Dosage: 160 MILLIGRAM; FREQUENCY: 1 COURSE PER MONTH
     Route: 041
     Dates: start: 20120601, end: 20120601

REACTIONS (2)
  - PANCYTOPENIA [None]
  - SEPTIC SHOCK [None]
